FAERS Safety Report 24937564 (Version 1)
Quarter: 2025Q1

REPORT INFORMATION
  Report Type: Spontaneous
  Country: RU (occurrence: RU)
  Receive Date: 20250206
  Receipt Date: 20250206
  Transmission Date: 20250408
  Serious: Yes (Death, Other)
  Sender: EMD SERONO INC
  Company Number: RU-Merck Healthcare KGaA-2025005859

PATIENT
  Age: 74 Year
  Sex: Male

DRUGS (1)
  1. BAVENCIO [Suspect]
     Active Substance: AVELUMAB
     Indication: Transitional cell carcinoma metastatic

REACTIONS (3)
  - Metastases to liver [Fatal]
  - Aspartate aminotransferase increased [Unknown]
  - Alanine aminotransferase increased [Unknown]

NARRATIVE: CASE EVENT DATE: 20241201
